FAERS Safety Report 20749600 (Version 1)
Quarter: 2022Q2

REPORT INFORMATION
  Report Type: Spontaneous
  Country: US (occurrence: None)
  Receive Date: 20220425
  Receipt Date: 20220425
  Transmission Date: 20220721
  Serious: Yes (Hospitalization)
  Sender: FDA-Public Use
  Company Number: None

PATIENT
  Age: 56 Year
  Sex: Female

DRUGS (1)
  1. ENTECAVIR [Suspect]
     Active Substance: ENTECAVIR
     Indication: Chronic hepatitis C
     Dosage: FREQUENCY : DAILY;?
     Route: 048
     Dates: start: 20220206

REACTIONS (4)
  - Helicobacter test positive [None]
  - Blood iron decreased [None]
  - Haemoglobin decreased [None]
  - Haematocrit decreased [None]

NARRATIVE: CASE EVENT DATE: 20220413
